FAERS Safety Report 23288799 (Version 1)
Quarter: 2023Q4

REPORT INFORMATION
  Report Type: Spontaneous
  Country: US (occurrence: None)
  Receive Date: 20231211
  Receipt Date: 20231211
  Transmission Date: 20240110
  Serious: Yes (Disabling)
  Sender: FDA-Public Use
  Company Number: None

PATIENT
  Age: 82 Year
  Sex: Male
  Weight: 78.75 kg

DRUGS (12)
  1. LEVOFLOXACIN [Suspect]
     Active Substance: LEVOFLOXACIN
     Indication: Bronchitis
     Dosage: FREQUENCY : DAILY;?
     Route: 048
     Dates: end: 20160707
  2. ENTRESTO [Concomitant]
     Active Substance: SACUBITRIL\VALSARTAN
  3. ATORVASTATIN [Concomitant]
     Active Substance: ATORVASTATIN
  4. METOPROLOL [Concomitant]
     Active Substance: METOPROLOL
  5. XARELTO [Concomitant]
     Active Substance: RIVAROXABAN
  6. CLOPIDOGREL [Concomitant]
     Active Substance: CLOPIDOGREL BISULFATE
  7. TORSEMIDE [Concomitant]
     Active Substance: TORSEMIDE
  8. VITAMIN D3 [Concomitant]
     Active Substance: CHOLECALCIFEROL
  9. FISH OIL [Concomitant]
     Active Substance: FISH OIL
  10. IRON [Concomitant]
     Active Substance: IRON
  11. QUERCETIN [Concomitant]
     Active Substance: QUERCETIN
  12. COENZYME Q10 [Concomitant]
     Active Substance: DIETARY SUPPLEMENT\UBIDECARENONE

REACTIONS (7)
  - Off label use [None]
  - Tendonitis [None]
  - Mitochondrial myopathy [None]
  - Brain fog [None]
  - Fatigue [None]
  - Nerve injury [None]
  - Contraindicated product administered [None]

NARRATIVE: CASE EVENT DATE: 20160705
